FAERS Safety Report 24987081 (Version 1)
Quarter: 2025Q1

REPORT INFORMATION
  Report Type: Report from Study
  Country: US (occurrence: US)
  Receive Date: 20250219
  Receipt Date: 20250219
  Transmission Date: 20250409
  Serious: Yes (Hospitalization)
  Sender: HLS THERAPEUTICS
  Company Number: US-HLS-202500037

PATIENT
  Age: 34 Year
  Sex: Male
  Weight: 136 kg

DRUGS (3)
  1. CLOZARIL [Suspect]
     Active Substance: CLOZAPINE
     Indication: Schizophrenia
     Route: 048
  2. DOXEPIN [Concomitant]
     Active Substance: DOXEPIN
     Indication: Product used for unknown indication
     Route: 065
  3. TRILAFON [Concomitant]
     Active Substance: PERPHENAZINE
     Indication: Product used for unknown indication
     Route: 065

REACTIONS (1)
  - Delusion [Unknown]
